FAERS Safety Report 6315103-4 (Version None)
Quarter: 2009Q3

REPORT INFORMATION
  Report Type: 
  Country: None (occurrence: None)
  Receive Date: 20090819
  Receipt Date: 20090807
  Transmission Date: 20100115
  Serious: Yes (Hospitalization, Other)
  Sender: FDA-Public Use
  Company Number: JP-PFIZER INC-2009225781

PATIENT
  Age: 52 Year

DRUGS (4)
  1. AZULFIDINE [Suspect]
     Indication: RHEUMATOID ARTHRITIS
     Dosage: 500 MG, 2X/DAY
     Dates: start: 20081001, end: 20090101
  2. AZULFIDINE [Suspect]
     Dosage: 500 MG, 1X/DAY
     Dates: start: 20090410, end: 20090605
  3. BEZATOL - SLOW RELEASE [Concomitant]
     Dosage: UNK
     Route: 048
  4. ADALAT CC [Concomitant]
     Dosage: UNK
     Route: 048

REACTIONS (7)
  - ABDOMINAL PAIN UPPER [None]
  - ARTHRALGIA [None]
  - BILE DUCT STONE [None]
  - HAEMORRHAGE [None]
  - MUSCULOSKELETAL STIFFNESS [None]
  - PANCREATIC PSEUDOCYST [None]
  - PANCREATITIS ACUTE [None]
